FAERS Safety Report 8281447-2 (Version None)
Quarter: 2012Q1

REPORT INFORMATION
  Report Type: 
  Country: None (occurrence: None)
  Receive Date: 20120316
  Receipt Date: 20100907
  Transmission Date: 20120608
  Serious: Yes (Other)
  Sender: FDA-Public Use
  Company Number: PHHY2010US52547

PATIENT

DRUGS (21)
  1. TEKTURNA [Suspect]
     Indication: HYPERTENSION
     Dosage: 150 MG, QD, ORAL
     Route: 048
     Dates: start: 20100508, end: 20100608
  2. CODEINE SULFATE [Concomitant]
  3. NIFEDIPINE [Concomitant]
  4. NAPROXEN [Concomitant]
  5. HYDRODIURIL [Concomitant]
  6. TENORMIN (ATENOLOL) TABLET [Concomitant]
  7. TRAMADOL HCL [Concomitant]
  8. ENALAPRIL MALEATE [Concomitant]
  9. RAMIPRIL [Concomitant]
  10. ACIDOPHILUS (LACTOBACILLUS ACIDOPHILUS) CAPSULE [Concomitant]
  11. LOMOTIL (ATROPINE SULFATE, DIPHENOXYLATE HYDROCHLORIDE) TABLET [Concomitant]
  12. VITAMIN C (ASCORBIC ACID) TABLET [Concomitant]
  13. AMLODIPINE [Concomitant]
  14. ALDACTONE [Concomitant]
  15. MULTIVITAMINS WITH MINERALS (NO INGREDIENTS/SUBSTANCES) [Concomitant]
  16. OMEGA-3 FATTY ACIDS (OMEGA-3 FATTY ACIDS) [Concomitant]
  17. PRINIVIL [Concomitant]
  18. CATAPRES [Concomitant]
  19. LEVOXYL [Concomitant]
  20. MIRALAX [Concomitant]
  21. COZAAR [Concomitant]

REACTIONS (1)
  - ANGIOEDEMA [None]
